FAERS Safety Report 9449279 (Version 1)
Quarter: 2013Q3

REPORT INFORMATION
  Report Type: Spontaneous
  Country: DE (occurrence: DE)
  Receive Date: 20130808
  Receipt Date: 20130808
  Transmission Date: 20140515
  Serious: Yes (Other)
  Sender: FDA-Public Use
  Company Number: DE-WATSON-2013-13976

PATIENT
  Sex: 0

DRUGS (4)
  1. METOPROLOL (UNKNOWN) [Suspect]
     Indication: HYPERTENSION
     Dosage: 200 [MG/D]/100 [MG/D] IN 1 TRIMESTER, 200 MG/D IN 2+3 TRIMESTER
     Route: 048
  2. NEPRESOL [Suspect]
     Indication: HYPERTENSION
     Dosage: 25 MG, BID
     Route: 048
  3. PRESINOL [Concomitant]
     Indication: HYPERTENSION
     Dosage: 250 MG, DAILY
     Route: 065
  4. FOLSAEURE [Concomitant]
     Indication: PROPHYLAXIS OF NEURAL TUBE DEFECT
     Dosage: UNK, UNKNOWN
     Route: 065

REACTIONS (2)
  - Pre-eclampsia [Recovered/Resolved]
  - Caesarean section [Recovered/Resolved]
